FAERS Safety Report 8488427-2 (Version None)
Quarter: 2012Q2

REPORT INFORMATION
  Report Type: 
  Country: None (occurrence: None)
  Receive Date: 20120626
  Receipt Date: 20120611
  Transmission Date: 20120825
  Serious: Yes (Other)
  Sender: FDA-Public Use
  Company Number: 1314810

PATIENT
  Age: 36 Year
  Sex: Female
  Weight: 74.84 kg

DRUGS (2)
  1. SODIUM CHLORIDE INJ (SODIUM CHLORIDE) [Concomitant]
  2. MORPHINE SULFATE [Suspect]
     Indication: ARTHRALGIA
     Dosage: 2 MG, X1, INTRAVENOUS (NOT OTHERWISE SPECIFIED)
     Route: 042
     Dates: start: 20120610, end: 20120610

REACTIONS (5)
  - NAUSEA [None]
  - FATIGUE [None]
  - INJECTION SITE ERYTHEMA [None]
  - HYPERSENSITIVITY [None]
  - THROAT TIGHTNESS [None]
